FAERS Safety Report 5198209-5 (Version None)
Quarter: 2007Q1

REPORT INFORMATION
  Report Type: 
  Country: None (occurrence: None)
  Receive Date: 20070104
  Receipt Date: 20061221
  Transmission Date: 20070707
  Serious: Yes (Other)
  Sender: FDA-Public Use
  Company Number: GSK781

PATIENT
  Age: 26 Year
  Sex: Female

DRUGS (3)
  1. ACETAMINOPHEN [Suspect]
     Indication: INTENTIONAL OVERDOSE
     Route: 048
  2. ETHANOL [Suspect]
     Indication: INTENTIONAL OVERDOSE
  3. AMOXICILLIN + CLAVULANIC ACID [Suspect]
     Indication: INTENTIONAL OVERDOSE
     Route: 048

REACTIONS (3)
  - INTENTIONAL OVERDOSE [None]
  - TACHYCARDIA [None]
  - VOMITING [None]
